FAERS Safety Report 18846217 (Version 1)
Quarter: 2021Q1

REPORT INFORMATION
  Report Type: Report from Study
  Country: US (occurrence: US)
  Receive Date: 20210203
  Receipt Date: 20210203
  Transmission Date: 20210419
  Serious: No
  Sender: FDA-Public Use
  Company Number: US-EXELIXIS-CABO-20030353

PATIENT
  Age: 75 Year
  Sex: Male

DRUGS (2)
  1. CABOMETYX [Suspect]
     Active Substance: CABOZANTINIB S-MALATE
     Indication: RENAL CELL CARCINOMA
     Dosage: 40 MG, QD
     Route: 048
     Dates: start: 20200510, end: 20200519
  2. CABOMETYX [Suspect]
     Active Substance: CABOZANTINIB S-MALATE
     Dosage: 40 MG, QOD
     Route: 048
     Dates: start: 20200628

REACTIONS (13)
  - Decreased appetite [Recovered/Resolved]
  - Inappropriate schedule of product administration [Unknown]
  - Hot flush [Recovered/Resolved]
  - Fatigue [Unknown]
  - Dysphonia [Unknown]
  - Nausea [Unknown]
  - Photosensitivity reaction [Unknown]
  - Dry mouth [Recovered/Resolved]
  - Hypertension [Recovered/Resolved]
  - Insomnia [Unknown]
  - Dysphagia [Unknown]
  - Pain [Recovered/Resolved]
  - Oral mucosal blistering [Recovered/Resolved]

NARRATIVE: CASE EVENT DATE: 202005
